FAERS Safety Report 24279102 (Version 1)
Quarter: 2024Q3

REPORT INFORMATION
  Report Type: Spontaneous
  Country: US (occurrence: None)
  Receive Date: 20240903
  Receipt Date: 20240903
  Transmission Date: 20241016
  Serious: Yes (Disabling)
  Sender: Public
  Company Number: None

PATIENT
  Age: 60 Year
  Sex: Female
  Weight: 55.8 kg

DRUGS (3)
  1. AIMOVIG [Suspect]
     Active Substance: ERENUMAB-AOOE
  2. PREDNISONE [Concomitant]
     Active Substance: PREDNISONE
  3. Folic acid/methotrexate [Concomitant]

REACTIONS (2)
  - Muscle tightness [None]
  - Muscle spasms [None]

NARRATIVE: CASE EVENT DATE: 20240503
